FAERS Safety Report 6489977-0 (Version None)
Quarter: 2009Q4

REPORT INFORMATION
  Report Type: 
  Country: None (occurrence: None)
  Receive Date: 20091211
  Receipt Date: 20091208
  Transmission Date: 20100525
  Serious: Yes (Death, Hospitalization, Other)
  Sender: FDA-Public Use
  Company Number: PHHY2009BR54215

PATIENT
  Sex: Male

DRUGS (6)
  1. FORASEQ [Suspect]
     Indication: EMPHYSEMA
     Dosage: 12/400 MCG 60/60, BID
  2. FORASEQ [Suspect]
     Indication: CHRONIC OBSTRUCTIVE PULMONARY DISEASE
  3. COMBIVENT [Concomitant]
     Indication: DYSPNOEA
  4. PHYTOTHERAPIC [Concomitant]
     Indication: ANGIOPATHY
  5. OMEPRAZOLE [Concomitant]
     Indication: HIATUS HERNIA
     Dosage: MORNING ON AN EMPTY STOMACH
     Route: 048
  6. VITAMINS [Concomitant]

REACTIONS (5)
  - CHRONIC OBSTRUCTIVE PULMONARY DISEASE [None]
  - DYSPNOEA [None]
  - MALNUTRITION [None]
  - PROTEINURIA [None]
  - SWELLING [None]
